FAERS Safety Report 13248604 (Version 1)
Quarter: 2017Q1

REPORT INFORMATION
  Report Type: Spontaneous
  Country: US (occurrence: US)
  Receive Date: 20170218
  Receipt Date: 20170218
  Transmission Date: 20170428
  Serious: No
  Sender: FDA-Public Use
  Company Number: US-ALLERGAN-1660148US

PATIENT
  Sex: Male

DRUGS (3)
  1. RESTASIS [Suspect]
     Active Substance: CYCLOSPORINE
     Indication: DRY EYE
     Dosage: 1 GTT, BID
     Route: 047
  2. ZOMIG [Concomitant]
     Active Substance: ZOLMITRIPTAN
     Indication: MIGRAINE
     Route: 048
  3. SYSTANE ULTRA [Concomitant]
     Active Substance: POLYETHYLENE GLYCOL 400\PROPYLENE GLYCOL
     Indication: DRY EYE
     Dosage: UNK UNK, PRN
     Route: 047

REACTIONS (11)
  - Headache [Not Recovered/Not Resolved]
  - Incorrect product storage [Unknown]
  - Depression [Not Recovered/Not Resolved]
  - Eye inflammation [Not Recovered/Not Resolved]
  - Wrong technique in product usage process [Unknown]
  - Inappropriate schedule of drug administration [Unknown]
  - Dry eye [Not Recovered/Not Resolved]
  - Fungal test positive [Not Recovered/Not Resolved]
  - Dysgeusia [Not Recovered/Not Resolved]
  - Eye irritation [Not Recovered/Not Resolved]
  - Eye pain [Not Recovered/Not Resolved]
